FAERS Safety Report 11467390 (Version 1)
Quarter: 2015Q3

REPORT INFORMATION
  Report Type: Spontaneous
  Country: IT (occurrence: IT)
  Receive Date: 20150908
  Receipt Date: 20150908
  Transmission Date: 20151125
  Serious: Yes (Life-Threatening)
  Sender: FDA-Public Use
  Company Number: IT-TEVA-590317ACC

PATIENT
  Age: 74 Year
  Sex: Male

DRUGS (6)
  1. TRIMETON - 10 MG/1 ML SOLUZIONE INIETTABILE - BAYER S.P.A. [Concomitant]
     Indication: PROPHYLAXIS
     Dosage: 10 MG
     Route: 042
     Dates: start: 20150826, end: 20150826
  2. RANITIDINA S.A.L.F. - S.A.L.F. SPA LABORATORIO FARMACOLOGICO [Concomitant]
     Indication: PROPHYLAXIS
     Dosage: 50 MG
     Route: 042
     Dates: start: 20150826, end: 20150826
  3. CARBOPLATINO TEVA - 10 MG/ML - TEVA PHARMA B.V. [Concomitant]
     Active Substance: CARBOPLATIN
     Indication: LUNG NEOPLASM
     Dosage: 120 MG
     Route: 042
     Dates: start: 20150826, end: 20150826
  4. DESAMETASONE FOSFATO HOSPIRA - 8 MG/2 ML SOLUZIONE INIETTABILE [Concomitant]
     Indication: PROPHYLAXIS
     Dosage: 8 MG
     Route: 042
     Dates: start: 20150826, end: 20150826
  5. PACLITAXEL TEVA - 6 MG/ML CONCENTRATO PER SOLUZIONE PER INFUSIONE [Suspect]
     Active Substance: PACLITAXEL
     Indication: LUNG NEOPLASM
     Dosage: 100 MG CYCLICAL
     Route: 042
     Dates: start: 20150826, end: 20150826
  6. ONDANSETRONE HIKMA - 8 MG/4 ML SOLUZIONE INIETTABILE [Concomitant]
     Indication: PROPHYLAXIS OF NAUSEA AND VOMITING
     Dosage: 8 MG
     Route: 042
     Dates: start: 20150826, end: 20150826

REACTIONS (2)
  - Hypotension [Recovered/Resolved]
  - Oxygen saturation decreased [Recovered/Resolved]

NARRATIVE: CASE EVENT DATE: 20150826
